FAERS Safety Report 24729195 (Version 1)
Quarter: 2024Q4

REPORT INFORMATION
  Report Type: Spontaneous
  Country: US (occurrence: US)
  Receive Date: 20241213
  Receipt Date: 20241213
  Transmission Date: 20250114
  Serious: No
  Sender: JOHNSON AND JOHNSON
  Company Number: US-JNJFOC-20241134590

PATIENT
  Age: 33 Year
  Sex: Female

DRUGS (1)
  1. REMICADE [Suspect]
     Active Substance: INFLIXIMAB
     Indication: Product used for unknown indication
     Route: 041
     Dates: start: 20241115

REACTIONS (1)
  - Product preparation issue [Unknown]

NARRATIVE: CASE EVENT DATE: 20241115
